FAERS Safety Report 13637941 (Version 1)
Quarter: 2017Q2

REPORT INFORMATION
  Report Type: Report from Study
  Country: US (occurrence: US)
  Receive Date: 20170609
  Receipt Date: 20170609
  Transmission Date: 20170830
  Serious: No
  Sender: FDA-Public Use
  Company Number: GXBR2017US001689

PATIENT
  Sex: Male
  Weight: 38 kg

DRUGS (1)
  1. OMNITROPE [Suspect]
     Active Substance: SOMATROPIN
     Indication: GROWTH RETARDATION
     Dosage: 1.7 MG, QD
     Route: 058
     Dates: start: 201410

REACTIONS (3)
  - Incorrect dose administered [Recovered/Resolved]
  - Skin infection [Recovered/Resolved]
  - Asthma [Recovered/Resolved]
